FAERS Safety Report 4881735-3 (Version None)
Quarter: 2006Q1

REPORT INFORMATION
  Report Type: 
  Country: None (occurrence: None)
  Receive Date: 20060116
  Receipt Date: 20051209
  Transmission Date: 20060701
  Serious: Yes (Other)
  Sender: FDA-Public Use
  Company Number: US-ROCHE-428408

PATIENT
  Age: 28 Year
  Sex: Female

DRUGS (3)
  1. DIAZEPAM [Suspect]
     Indication: ANXIETY
     Dosage: UP TO 4 PER DAY, AS NEEDED.
     Route: 048
  2. DIAZEPAM [Suspect]
     Route: 048
  3. IMIPRAMINE [Concomitant]
     Indication: DEPRESSION
     Dosage: STABLISED ON 100 MG DAILY.

REACTIONS (6)
  - AGGRESSION [None]
  - ANGER [None]
  - DISINHIBITION [None]
  - DRUG ADMINISTRATION ERROR [None]
  - LIBIDO INCREASED [None]
  - SELF INJURIOUS BEHAVIOUR [None]
